FAERS Safety Report 24297180 (Version 1)
Quarter: 2024Q3

REPORT INFORMATION
  Report Type: Spontaneous
  Country: CN (occurrence: CN)
  Receive Date: 20240909
  Receipt Date: 20240909
  Transmission Date: 20241016
  Serious: Yes (Hospitalization)
  Sender: DR REDDYS
  Company Number: None

PATIENT
  Age: 17 Year
  Sex: Female

DRUGS (1)
  1. OLANZAPINE [Suspect]
     Active Substance: OLANZAPINE
     Indication: Affect lability
     Dosage: 5MG,QD
     Route: 048
     Dates: start: 20240820, end: 20240824

REACTIONS (2)
  - Weight increased [Recovered/Resolved]
  - Medical diet [Recovered/Resolved]

NARRATIVE: CASE EVENT DATE: 20240820
